FAERS Safety Report 6416541-1 (Version None)
Quarter: 2009Q4

REPORT INFORMATION
  Report Type: 
  Country: None (occurrence: None)
  Receive Date: 20091027
  Receipt Date: 20091020
  Transmission Date: 20100525
  Serious: Yes (Death, Other)
  Sender: FDA-Public Use
  Company Number: PHHY2009BR45460

PATIENT
  Sex: Female

DRUGS (2)
  1. DIOVAN [Suspect]
     Indication: HYPERTENSION
     Dosage: UNK
     Route: 048
  2. DRUG THERAPY NOS [Concomitant]

REACTIONS (5)
  - FOAMING AT MOUTH [None]
  - INFARCTION [None]
  - MALAISE [None]
  - PULSE PRESSURE DECREASED [None]
  - URINARY INCONTINENCE [None]
